FAERS Safety Report 4424379-X (Version None)
Quarter: 2004Q3

REPORT INFORMATION
  Report Type: 
  Country: None (occurrence: None)
  Receive Date: 20040812
  Receipt Date: 20040413
  Transmission Date: 20050211
  Serious: Yes (Hospitalization)
  Sender: FDA-Public Use
  Company Number: CH-MERCK-0404CHE00013

PATIENT
  Age: 65 Year
  Sex: Female
  Weight: 51 kg

DRUGS (2)
  1. ZETIA [Suspect]
     Route: 048
     Dates: start: 20030801, end: 20040405
  2. PRAVASTATIN SODIUM [Concomitant]
     Route: 048
     Dates: start: 20030801, end: 20040405

REACTIONS (11)
  - EXANTHEM [None]
  - HAEMOGLOBIN DECREASED [None]
  - HEPATITIS [None]
  - HYPERSENSITIVITY [None]
  - INFLUENZA LIKE ILLNESS [None]
  - RED BLOOD CELL COUNT DECREASED [None]
  - SCARLET FEVER [None]
  - SEASONAL ALLERGY [None]
  - STAPHYLOCOCCAL TOXAEMIA [None]
  - STREPTOCOCCAL INFECTION [None]
  - TOXIC SKIN ERUPTION [None]
